FAERS Safety Report 11808098 (Version 1)
Quarter: 2015Q4

REPORT INFORMATION
  Report Type: Report from Study
  Country: US (occurrence: US)
  Receive Date: 20151207
  Receipt Date: 20151207
  Transmission Date: 20160305
  Serious: Yes (Hospitalization, Other)
  Sender: FDA-Public Use
  Company Number: US-009507513-1512USA002512

PATIENT
  Age: 68 Year

DRUGS (2)
  1. BORTEZOMIB [Suspect]
     Active Substance: BORTEZOMIB
     Indication: PLASMA CELL MYELOMA
     Dosage: 2.35 MG, QW
     Route: 058
     Dates: start: 20130605, end: 20130814
  2. HEXADROL [Suspect]
     Active Substance: DEXAMETHASONE
     Indication: PLASMA CELL MYELOMA
     Dosage: 20 MG, QD
     Route: 048
     Dates: start: 20130521, end: 20130814

REACTIONS (6)
  - Atrial fibrillation [Unknown]
  - Acute pulmonary oedema [Unknown]
  - Metabolic alkalosis [Unknown]
  - Respiratory arrest [Unknown]
  - Chronic kidney disease [Unknown]
  - Pneumonia [Recovered/Resolved]

NARRATIVE: CASE EVENT DATE: 201306
